FAERS Safety Report 14283027 (Version 11)
Quarter: 2018Q2

REPORT INFORMATION
  Report Type: Spontaneous
  Country: DE (occurrence: DE)
  Receive Date: 20171213
  Receipt Date: 20180627
  Transmission Date: 20180711
  Serious: Yes (Hospitalization)
  Sender: FDA-Public Use
  Company Number: DE-TEVA-2017-DE-831071

PATIENT
  Age: 58 Year
  Sex: Female
  Weight: 55 kg

DRUGS (20)
  1. PREDNISOLONE. [Suspect]
     Active Substance: PREDNISOLONE
     Indication: B-CELL LYMPHOMA
     Dosage: 500 MILLIGRAM DAILY; DAILY DOSE: 500 MG MILLGRAM(S) EVERY DAYS
     Route: 048
     Dates: start: 20171012, end: 20171012
  2. PREDNISOLONE. [Suspect]
     Active Substance: PREDNISOLONE
     Route: 048
     Dates: start: 20171113
  3. CYCLOPHOSPHAMIDE. [Suspect]
     Active Substance: CYCLOPHOSPHAMIDE
     Indication: B-CELL LYMPHOMA
     Dosage: 1400 MILLIGRAM DAILY; DAILY DOSE: 1400 MG MILLGRAM(S) EVERY DAYS
     Route: 042
     Dates: start: 20171012, end: 20171012
  4. AFINITOR [Suspect]
     Active Substance: EVEROLIMUS
     Indication: BREAST CANCER METASTATIC
     Dosage: 10 MG, QD
     Route: 048
     Dates: start: 20160901, end: 20170126
  5. PREDNISOLONE. [Concomitant]
     Active Substance: PREDNISOLONE
     Indication: PRODUCT USED FOR UNKNOWN INDICATION
     Dosage: 500 MG, QD
     Route: 048
     Dates: start: 20171012, end: 20171012
  6. ZOPICLON [Concomitant]
     Active Substance: ZOPICLONE
     Indication: SLEEP DISORDER THERAPY
     Dosage: 7.5 MILLIGRAM DAILY;
     Route: 048
     Dates: start: 20171010
  7. MABTHERA [Suspect]
     Active Substance: RITUXIMAB
     Indication: B-CELL LYMPHOMA
     Dosage: 700 MILLIGRAM DAILY;
     Route: 042
     Dates: start: 20171011, end: 20171011
  8. AFINITOR [Suspect]
     Active Substance: EVEROLIMUS
     Dosage: 10 MILLIGRAM DAILY; 10 MG, QD
     Route: 048
     Dates: start: 20160523, end: 20160808
  9. PREDNISOLONE. [Concomitant]
     Active Substance: PREDNISOLONE
     Indication: PRODUCT USED FOR UNKNOWN INDICATION
     Dosage: 20 MILLIGRAM DAILY;
     Route: 065
     Dates: start: 20170213
  10. ACETYLSALICYLSAEURE [Concomitant]
     Active Substance: ASPIRIN
     Indication: PROPHYLAXIS
     Dosage: 100 MG, QD
     Route: 048
     Dates: start: 20171010
  11. EXEMESTANE. [Suspect]
     Active Substance: EXEMESTANE
     Dosage: CUMULATIVE DOSE 7250 MG
     Route: 048
     Dates: start: 20160523, end: 20170126
  12. PEGFILGRASTIM [Suspect]
     Active Substance: PEGFILGRASTIM
     Indication: B-CELL LYMPHOMA
     Dosage: 6 MILLIGRAM DAILY;
     Route: 058
     Dates: start: 20171015, end: 20171015
  13. ASPIRIN. [Concomitant]
     Active Substance: ASPIRIN
     Indication: PROPHYLAXIS
     Dosage: 100 MILLIGRAM DAILY; 100 MG, QD DAILY DOSE: 100 MG MILLIGRAM(S) EVERY DAY
     Route: 048
     Dates: start: 20171010
  14. TAMSULOSIN [Concomitant]
     Active Substance: TAMSULOSIN
     Indication: BENIGN PROSTATIC HYPERPLASIA
     Dosage: 4 MILLIGRAM DAILY; 4 MG, QD DAILY DOSE: 4 MG MILLIGRAM(S) EVERY DAY
     Route: 048
     Dates: start: 20171010
  15. VINCRISTINE [Suspect]
     Active Substance: VINCRISTINE
     Indication: B-CELL LYMPHOMA
     Dosage: 3.12 MILLIGRAM DAILY; 3.12 MG, QD, CUMULATIVE DOSE 3 MG
     Route: 042
     Dates: start: 20171012, end: 20171012
  16. PEGFILGRASTIM [Suspect]
     Active Substance: PEGFILGRASTIM
     Dosage: 6MG QD
     Route: 058
     Dates: start: 20171012, end: 20171012
  17. SIMVASTATIN. [Concomitant]
     Active Substance: SIMVASTATIN
     Indication: HYPERCHOLESTEROLAEMIA
     Dosage: 20 MILLIGRAM DAILY; 20 MG, QD DAILY DOSE: 20 MG MILLIGRAM(S) EVERY DAY
     Route: 048
     Dates: start: 20171010
  18. PREDNISOLONE. [Concomitant]
     Active Substance: PREDNISOLONE
     Route: 048
     Dates: start: 20171113
  19. DOXORUBICIN [Suspect]
     Active Substance: DOXORUBICIN
     Indication: B-CELL LYMPHOMA
     Dosage: 95 MILLIGRAM DAILY;
     Route: 042
     Dates: start: 20171012, end: 20171012
  20. MABTHERA [Suspect]
     Active Substance: RITUXIMAB
     Route: 042

REACTIONS (7)
  - Off label use [Unknown]
  - Product use in unapproved indication [Unknown]
  - Pneumonitis [Not Recovered/Not Resolved]
  - Pneumonia [Recovered/Resolved]
  - Dyspnoea [Not Recovered/Not Resolved]
  - Off label use [Unknown]
  - Product use in unapproved indication [Unknown]

NARRATIVE: CASE EVENT DATE: 20170126
